FAERS Safety Report 18382417 (Version 1)
Quarter: 2020Q4

REPORT INFORMATION
  Report Type: Spontaneous
  Country: PT (occurrence: PT)
  Receive Date: 20201014
  Receipt Date: 20201014
  Transmission Date: 20210114
  Serious: Yes (Death, Other)
  Sender: FDA-Public Use
  Company Number: PT-JNJFOC-20201020009

PATIENT
  Age: 26 Year
  Sex: Female

DRUGS (1)
  1. TRAMADOL HYDROCHLORIDE. [Suspect]
     Active Substance: TRAMADOL HYDROCHLORIDE
     Indication: PRODUCT USED FOR UNKNOWN INDICATION
     Dosage: UNK
     Route: 048
     Dates: end: 20080214

REACTIONS (4)
  - Drug level increased [Fatal]
  - Medication error [Fatal]
  - Cardio-respiratory arrest [Fatal]
  - Intentional overdose [Fatal]

NARRATIVE: CASE EVENT DATE: 20080214
